FAERS Safety Report 10420847 (Version 1)
Quarter: 2014Q3

REPORT INFORMATION
  Report Type: Spontaneous
  Country: US (occurrence: None)
  Receive Date: 20140714
  Receipt Date: 20140714
  Transmission Date: 20150326
  Serious: Yes (Death)
  Sender: FDA-Public Use
  Company Number: 2014US003283

PATIENT
  Age: 76 Year
  Sex: Female

DRUGS (8)
  1. MULTIVITAMIN (VITAMINS NOS) [Concomitant]
     Active Substance: VITAMINS
  2. THYROID THYROID) [Concomitant]
  3. FERROUS SULFATE [Concomitant]
     Active Substance: FERROUS SULFATE\FERROUS SULFATE, DRIED
  4. VITAMIN B12 (HYDROXOCOBALAMIN) [Concomitant]
  5. VITAMIN D (COLECALCIFEROL) [Concomitant]
  6. NOVOLOG [Concomitant]
     Active Substance: INSULIN ASPART
  7. ICLUSIG [Suspect]
     Active Substance: PONATINIB
     Indication: CHRONIC MYELOID LEUKAEMIA
     Route: 048
     Dates: start: 20130326
  8. CALCIUM PLUS D3 (CALCIUM COLECALCIFEROL) [Concomitant]

REACTIONS (1)
  - Chronic myeloid leukaemia [None]

NARRATIVE: CASE EVENT DATE: 20140308
